FAERS Safety Report 12376667 (Version 2)
Quarter: 2016Q2

REPORT INFORMATION
  Report Type: Report from Study
  Country: US (occurrence: US)
  Receive Date: 20160517
  Receipt Date: 20160517
  Transmission Date: 20160815
  Serious: No
  Sender: FDA-Public Use
  Company Number: US-MALLINCKRODT-T201502676

PATIENT
  Age: 62 Year
  Sex: Female

DRUGS (6)
  1. REPOSITORY CORTICOTROPIN INJECTION [Suspect]
     Active Substance: CORTICOTROPIN
     Dosage: 80 UNITS, 3 INJECTIONS THIS MONTH
     Route: 058
     Dates: start: 20150824, end: 20150826
  2. REPOSITORY CORTICOTROPIN INJECTION [Suspect]
     Active Substance: CORTICOTROPIN
     Indication: RHEUMATOID ARTHRITIS
     Dosage: 80 UNITS ONCE DAILY X 5 DAYS
     Route: 058
     Dates: start: 20150505, end: 20150509
  3. REPOSITORY CORTICOTROPIN INJECTION [Suspect]
     Active Substance: CORTICOTROPIN
     Dosage: 80 UNITS 1X/WEEK FOR 3 WEEKS OFF I WEEK
     Route: 058
     Dates: start: 20151016
  4. GAMUNEX-C [Suspect]
     Active Substance: HUMAN IMMUNOGLOBULIN G
     Indication: PRODUCT USED FOR UNKNOWN INDICATION
     Route: 065
  5. REPOSITORY CORTICOTROPIN INJECTION [Suspect]
     Active Substance: CORTICOTROPIN
     Dosage: 80 UNITS PER DAY FOR 3 CONSECUTIVE DAYS EVERY MONTH
     Route: 058
     Dates: start: 20150924, end: 20150926
  6. REPOSITORY CORTICOTROPIN INJECTION [Suspect]
     Active Substance: CORTICOTROPIN
     Indication: CHRONIC INFLAMMATORY DEMYELINATING POLYRADICULONEUROPATHY
     Dosage: 80 UNITS PER DAY FOR 3 CONSECUTIVE DAYS EVERY MONTH
     Route: 058
     Dates: start: 201507, end: 201507

REACTIONS (18)
  - Injection site rash [Recovered/Resolved]
  - Injection site bruising [Unknown]
  - Injection site mass [Recovered/Resolved]
  - Vomiting [Recovered/Resolved]
  - Nerve injury [Not Recovered/Not Resolved]
  - Food craving [Unknown]
  - Abdominal pain upper [Recovered/Resolved]
  - Hypoaesthesia [Not Recovered/Not Resolved]
  - Injection site pruritus [Recovered/Resolved]
  - Diarrhoea [Recovered/Resolved]
  - Somnolence [Unknown]
  - Fatigue [Unknown]
  - Bone pain [Not Recovered/Not Resolved]
  - Pain in extremity [Not Recovered/Not Resolved]
  - Malaise [Not Recovered/Not Resolved]
  - Constipation [Unknown]
  - Injection site erythema [Recovered/Resolved]
  - Neck pain [Not Recovered/Not Resolved]

NARRATIVE: CASE EVENT DATE: 20150509
